FAERS Safety Report 9921939 (Version 3)
Quarter: 2014Q2

REPORT INFORMATION
  Report Type: Spontaneous
  Country: US (occurrence: US)
  Receive Date: 20140225
  Receipt Date: 20140424
  Transmission Date: 20141212
  Serious: Yes (Other)
  Sender: FDA-Public Use
  Company Number: US-UCBSA-104124

PATIENT
  Age: 75 Year
  Sex: Female
  Weight: 50.8 kg

DRUGS (5)
  1. CIMZIA [Suspect]
     Indication: CROHN^S DISEASE
     Route: 058
     Dates: start: 20131105, end: 2013
  2. PREDNISONE [Concomitant]
     Indication: HAEMORRHAGE
     Dosage: 20 MG / DAY
  3. LOSARTAN [Concomitant]
     Indication: BLOOD PRESSURE
     Dosage: 50 MG/DAY
  4. LIALDA [Concomitant]
     Dosage: 21.2 GM/DAY
  5. TRAMA-DOL HYDROCHLORIDE [Concomitant]
     Indication: PAIN
     Dosage: PILL

REACTIONS (29)
  - Intestinal haemorrhage [Unknown]
  - Blindness transient [Unknown]
  - Dizziness [Recovered/Resolved]
  - Vision blurred [Recovered/Resolved]
  - Unevaluable event [Recovered/Resolved]
  - Asthenia [Not Recovered/Not Resolved]
  - Headache [Recovered/Resolved]
  - Back pain [Recovered/Resolved]
  - Eye irritation [Unknown]
  - Oral pain [Unknown]
  - Oropharyngeal pain [Recovered/Resolved]
  - Nervousness [Recovered/Resolved]
  - Musculoskeletal pain [Recovered/Resolved]
  - Myalgia [Recovered/Resolved]
  - Fistula [Not Recovered/Not Resolved]
  - Frequent bowel movements [Not Recovered/Not Resolved]
  - Muscle spasms [Unknown]
  - Amnesia [Not Recovered/Not Resolved]
  - Skin discolouration [Unknown]
  - Pain [Unknown]
  - Chest pain [Unknown]
  - Nausea [Unknown]
  - Influenza like illness [Unknown]
  - Feeling abnormal [Unknown]
  - Butterfly rash [Not Recovered/Not Resolved]
  - Rash [Not Recovered/Not Resolved]
  - Alopecia [Not Recovered/Not Resolved]
  - Cold-stimulus headache [Recovered/Resolved]
  - Injection site bruising [Not Recovered/Not Resolved]
